FAERS Safety Report 10787051 (Version 2)
Quarter: 2015Q1

REPORT INFORMATION
  Report Type: Spontaneous
  Country: CH (occurrence: CH)
  Receive Date: 20150211
  Receipt Date: 20150225
  Transmission Date: 20150721
  Serious: Yes (Other)
  Sender: FDA-Public Use
  Company Number: CH-GILEAD-2015-0136313

PATIENT
  Age: 69 Year

DRUGS (1)
  1. ATRIPLA [Suspect]
     Active Substance: EFAVIRENZ\EMTRICITABINE\TENOFOVIR DISOPROXIL FUMARATE
     Indication: HIV INFECTION
     Dosage: UNK
     Route: 065
     Dates: start: 2007

REACTIONS (2)
  - Humerus fracture [Unknown]
  - Spinal compression fracture [Unknown]

NARRATIVE: CASE EVENT DATE: 20140803
